FAERS Safety Report 16351393 (Version 2)
Quarter: 2019Q3

REPORT INFORMATION
  Report Type: Spontaneous
  Country: GR (occurrence: GR)
  Receive Date: 20190524
  Receipt Date: 20190701
  Transmission Date: 20191004
  Serious: Yes (Hospitalization)
  Sender: FDA-Public Use
  Company Number: GR-ROCHE-2325349

PATIENT
  Sex: Female

DRUGS (3)
  1. XOLAIR [Suspect]
     Active Substance: OMALIZUMAB
     Indication: CHRONIC SPONTANEOUS URTICARIA
     Route: 065
  2. LOSARTAN. [Concomitant]
     Active Substance: LOSARTAN
     Indication: PRODUCT USED FOR UNKNOWN INDICATION
     Route: 065
     Dates: start: 2012
  3. NEBIVOLOL. [Concomitant]
     Active Substance: NEBIVOLOL
     Indication: PRODUCT USED FOR UNKNOWN INDICATION
     Route: 065
     Dates: start: 2010

REACTIONS (4)
  - Headache [Unknown]
  - Subarachnoid haemorrhage [Unknown]
  - Musculoskeletal stiffness [Unknown]
  - Ruptured cerebral aneurysm [Recovered/Resolved]

NARRATIVE: CASE EVENT DATE: 20190415
